FAERS Safety Report 15033077 (Version 1)
Quarter: 2018Q3

REPORT INFORMATION
  Report Type: Spontaneous
  Country: US (occurrence: US)
  Receive Date: 20180619
  Receipt Date: 20180619
  Transmission Date: 20181010
  Serious: No
  Sender: FDA-Public Use
  Company Number: US-AVADEL SPECIALTY PHARMACEUTICALS, LLC-2018AVA00050

PATIENT
  Age: 46 Year
  Sex: Male
  Weight: 86.17 kg

DRUGS (3)
  1. PRILOSEC [Concomitant]
     Active Substance: OMEPRAZOLE MAGNESIUM
  2. NEXIUM [Concomitant]
     Active Substance: ESOMEPRAZOLE MAGNESIUM
  3. NOCTIVA [Suspect]
     Active Substance: DESMOPRESSIN ACETATE
     Indication: POLLAKIURIA
     Dosage: 0.83 ?G, 1X/DAY AT BEDTIME
     Route: 045
     Dates: start: 20180504, end: 20180504

REACTIONS (7)
  - Rhinorrhoea [Recovered/Resolved]
  - Application site pain [Recovering/Resolving]
  - Sneezing [Recovered/Resolved]
  - Drug ineffective [Recovered/Resolved]
  - Eye pain [None]
  - Lacrimation increased [Recovered/Resolved]
  - Ocular hyperaemia [Recovered/Resolved]

NARRATIVE: CASE EVENT DATE: 20180504
